FAERS Safety Report 22791015 (Version 2)
Quarter: 2023Q4

REPORT INFORMATION
  Report Type: Spontaneous
  Country: US (occurrence: US)
  Receive Date: 20230806
  Receipt Date: 20231212
  Transmission Date: 20240109
  Serious: No
  Sender: FDA-Public Use
  Company Number: US-SA-SAC20230803000613

PATIENT
  Sex: Female
  Weight: 110.6 kg

DRUGS (3)
  1. KEVZARA [Suspect]
     Active Substance: SARILUMAB
     Indication: Rheumatoid arthritis
     Dosage: 150 MG, QOW
     Route: 058
  2. KEVZARA [Suspect]
     Active Substance: SARILUMAB
     Dosage: 150 MG, QW
     Route: 058
     Dates: start: 201910
  3. PRIVIGEN [Concomitant]
     Active Substance: HUMAN IMMUNOGLOBULIN G
     Dosage: UNK

REACTIONS (6)
  - Ulcer [Recovering/Resolving]
  - Full blood count decreased [Unknown]
  - Poor peripheral circulation [Unknown]
  - Respiratory tract infection [Unknown]
  - Candida infection [Unknown]
  - Inappropriate schedule of product administration [Unknown]
